FAERS Safety Report 7997907-5 (Version None)
Quarter: 2011Q4

REPORT INFORMATION
  Report Type: 
  Country: None (occurrence: None)
  Receive Date: 20111221
  Receipt Date: 20111212
  Transmission Date: 20120403
  Serious: Yes (Other)
  Sender: FDA-Public Use
  Company Number: PHEH2011US009971

PATIENT
  Sex: Female
  Weight: 79 kg

DRUGS (5)
  1. CENTRUM SILVER [Concomitant]
  2. ZOLOFT [Concomitant]
     Dosage: 100 MG, DAILY
     Route: 048
     Dates: start: 20010101
  3. GLEEVEC [Suspect]
     Indication: CHRONIC MYELOID LEUKAEMIA
     Dosage: 200 MG, DAILY
     Route: 048
     Dates: start: 20101101
  4. GLEEVEC [Suspect]
     Dosage: 600 MG DAILY
     Route: 048
     Dates: start: 20101215
  5. ZYRTEC [Concomitant]
     Indication: SEASONAL ALLERGY
     Dosage: 10 MG, DAILY
     Route: 048

REACTIONS (5)
  - CONTUSION [None]
  - OEDEMA PERIPHERAL [None]
  - FALL [None]
  - PAIN IN EXTREMITY [None]
  - LIGAMENT SPRAIN [None]
